FAERS Safety Report 6969004-9 (Version None)
Quarter: 2010Q3

REPORT INFORMATION
  Report Type: 
  Country: None (occurrence: None)
  Receive Date: 20100903
  Receipt Date: 20100903
  Transmission Date: 20110219
  Serious: Yes (Hospitalization)
  Sender: FDA-Public Use
  Company Number: None

PATIENT
  Sex: Male
  Weight: 123.5 kg

DRUGS (8)
  1. PAZOPANIB [Suspect]
     Indication: RENAL CANCER
     Dosage: 800 MG
     Dates: start: 20100723, end: 20100902
  2. LOPRESSOR [Concomitant]
  3. HYDROCHLOROTHIAZIDE [Concomitant]
  4. COMPAZINE [Concomitant]
  5. MUPIROCIN [Concomitant]
  6. KETOCONAZOLE TOPICAL CREAM [Concomitant]
  7. KETOCONAZOLE SHAMPOO [Concomitant]
  8. HYDROCORTISONE [Concomitant]

REACTIONS (2)
  - CALCULUS URETERIC [None]
  - FUNGAL TEST POSITIVE [None]
